FAERS Safety Report 10215274 (Version 2)
Quarter: 2014Q2

REPORT INFORMATION
  Report Type: Report from Study
  Country: CZ (occurrence: CZ)
  Receive Date: 20140603
  Receipt Date: 20140603
  Transmission Date: 20141212
  Serious: Yes (Hospitalization)
  Sender: FDA-Public Use
  Company Number: PHHO2014CZ007464

PATIENT
  Sex: 0

DRUGS (12)
  1. BLINDED NO TREATMENT RECEIVED [Suspect]
     Indication: CHRONIC OBSTRUCTIVE PULMONARY DISEASE
     Dosage: DOUBLE BLINDED
     Route: 055
     Dates: start: 20140116, end: 20140517
  2. BLINDED PLACEBO [Suspect]
     Indication: CHRONIC OBSTRUCTIVE PULMONARY DISEASE
     Dosage: DOUBLE BLINDED
     Route: 055
     Dates: start: 20140116, end: 20140517
  3. BLINDED QVA149 [Suspect]
     Indication: CHRONIC OBSTRUCTIVE PULMONARY DISEASE
     Dosage: DOUBLE BLINDED
     Route: 055
     Dates: start: 20140116, end: 20140517
  4. BLINDED SERETIDE [Suspect]
     Indication: CHRONIC OBSTRUCTIVE PULMONARY DISEASE
     Dosage: DOUBLE BLINDED
     Route: 055
     Dates: start: 20140116, end: 20140517
  5. BLINDED NO TREATMENT RECEIVED [Suspect]
     Dosage: DOUBLE BLINDED
     Route: 055
     Dates: start: 20140521
  6. BLINDED PLACEBO [Suspect]
     Dosage: DOUBLE BLINDED
     Route: 055
     Dates: start: 20140521
  7. BLINDED QVA149 [Suspect]
     Dosage: DOUBLE BLINDED
     Route: 055
     Dates: start: 20140521
  8. BLINDED SERETIDE [Suspect]
     Dosage: DOUBLE BLINDED
     Route: 055
     Dates: start: 20140521
  9. LOMIR [Concomitant]
     Indication: HYPERTENSION
     Dosage: 5 MG, UNK
     Route: 048
  10. CONCOR [Concomitant]
     Indication: HYPERTENSION
     Dosage: 5 MG, UNK
     Route: 048
  11. GLUCOPHAGE [Concomitant]
     Indication: DIABETES MELLITUS
     Dosage: 850 MG, BID
     Route: 048
  12. VENTOLIN [Concomitant]
     Indication: CHRONIC OBSTRUCTIVE PULMONARY DISEASE
     Dosage: 100 UG, AS NEED
     Dates: start: 20131212

REACTIONS (3)
  - Diabetes mellitus [Recovered/Resolved]
  - Chronic obstructive pulmonary disease [Recovered/Resolved]
  - Acute respiratory failure [Recovered/Resolved]
